FAERS Safety Report 25339083 (Version 2)
Quarter: 2025Q3

REPORT INFORMATION
  Report Type: Spontaneous
  Country: US (occurrence: US)
  Receive Date: 20250521
  Receipt Date: 20250826
  Transmission Date: 20251021
  Serious: No
  Sender: AMNEAL
  Company Number: US-AMNEAL PHARMACEUTICALS-2025-AMRX-01412

PATIENT
  Sex: Female
  Weight: 46.712 kg

DRUGS (4)
  1. CREXONT [Suspect]
     Active Substance: CARBIDOPA\LEVODOPA
     Indication: Parkinson^s disease
     Dosage: 02 TABLETS, 2 /DAY
     Route: 048
     Dates: start: 20250326
  2. CREXONT [Suspect]
     Active Substance: CARBIDOPA\LEVODOPA
     Dosage: 02 TABLETS, 3 /DAY
     Route: 048
     Dates: start: 20250326
  3. CREXONT [Suspect]
     Active Substance: CARBIDOPA\LEVODOPA
     Route: 048
  4. SINEMET [Concomitant]
     Active Substance: CARBIDOPA\LEVODOPA
     Indication: Parkinson^s disease
     Route: 065

REACTIONS (7)
  - Palpitations [Unknown]
  - Hyperhidrosis [Unknown]
  - Tremor [Unknown]
  - Decreased appetite [Unknown]
  - Nausea [Unknown]
  - Dizziness [Unknown]
  - Dyskinesia [Unknown]
